FAERS Safety Report 14715668 (Version 1)
Quarter: 2018Q2

REPORT INFORMATION
  Report Type: Spontaneous
  Country: CN (occurrence: CN)
  Receive Date: 20180404
  Receipt Date: 20180404
  Transmission Date: 20180711
  Serious: Yes (Other)
  Sender: FDA-Public Use
  Company Number: CN-PFIZER INC-2018134755

PATIENT
  Age: 65 Year
  Sex: Male
  Weight: 61 kg

DRUGS (3)
  1. ASPIRIN (E.C.) [Suspect]
     Active Substance: ASPIRIN
     Indication: COAGULOPATHY
     Dosage: 100 MG, 1X/DAY
     Route: 048
     Dates: start: 20180102, end: 20180109
  2. LIPITOR [Suspect]
     Active Substance: ATORVASTATIN CALCIUM
     Indication: CEREBRAL INFARCTION
     Dosage: 20 MG, 1X/DAY
     Route: 048
     Dates: start: 20180110, end: 20180115
  3. DANSHEN [Suspect]
     Active Substance: HERBALS
     Indication: CARDIOVASCULAR DISORDER
     Dosage: 10 ML, 1X/DAY
     Route: 041
     Dates: start: 20180112, end: 20180115

REACTIONS (1)
  - Haemolysis [Recovered/Resolved]

NARRATIVE: CASE EVENT DATE: 20180115
